FAERS Safety Report 8688973 (Version 2)
Quarter: 2013Q1

REPORT INFORMATION
  Report Type: Spontaneous
  Country: US (occurrence: US)
  Receive Date: 20120727
  Receipt Date: 20130122
  Transmission Date: 20140127
  Serious: No
  Sender: FDA-Public Use
  Company Number: US-ASTRAZENECA-2011SE72458

PATIENT
  Age: 55 Year
  Sex: Male

DRUGS (2)
  1. SEROQUEL XR [Suspect]
     Indication: BIPOLAR DISORDER
     Route: 048
  2. SEROQUEL XR [Suspect]
     Indication: BIPOLAR DISORDER
     Route: 048

REACTIONS (5)
  - Activities of daily living impaired [Recovering/Resolving]
  - Adverse drug reaction [Unknown]
  - Memory impairment [Unknown]
  - Hypersomnia [Recovering/Resolving]
  - Drug ineffective [Recovering/Resolving]
